FAERS Safety Report 6245423-3 (Version None)
Quarter: 2009Q2

REPORT INFORMATION
  Report Type: 
  Country: None (occurrence: None)
  Receive Date: 20090625
  Receipt Date: 20090619
  Transmission Date: 20091009
  Serious: Yes (Hospitalization)
  Sender: FDA-Public Use
  Company Number: US-PURDUE-USA_2009_0038148

PATIENT
  Age: 77 Year
  Sex: Male

DRUGS (5)
  1. SENOKOT [Suspect]
     Indication: CONSTIPATION
     Dosage: 1 TABLET, SEE TEXT
  2. DARVOCET [Concomitant]
  3. COUMADIN [Concomitant]
  4. XANAX [Concomitant]
  5. PROTONIX                           /01263201/ [Concomitant]

REACTIONS (6)
  - ABDOMINAL PAIN UPPER [None]
  - ANOREXIA [None]
  - ASTHENIA [None]
  - CHEST PAIN [None]
  - HIATUS HERNIA [None]
  - NAUSEA [None]
